FAERS Safety Report 25878932 (Version 2)
Quarter: 2025Q4

REPORT INFORMATION
  Report Type: Spontaneous
  Country: GB (occurrence: GB)
  Receive Date: 20251003
  Receipt Date: 20251130
  Transmission Date: 20260118
  Serious: Yes (Other)
  Sender: IPSEN BIOPHARMACEUTICALS, INC.
  Company Number: GB-IPSEN Group, Research and Development-2025-24272

PATIENT
  Sex: Male

DRUGS (8)
  1. LANREOTIDE ACETATE [Suspect]
     Active Substance: LANREOTIDE ACETATE
     Indication: Neuroendocrine tumour
     Dosage: UNK
     Route: 058
     Dates: start: 20240628
  2. LANREOTIDE ACETATE [Suspect]
     Active Substance: LANREOTIDE ACETATE
     Dosage: 120 MG, E28D (DEEP SUBCUTANEOUS)
     Route: 058
  3. LANREOTIDE ACETATE [Suspect]
     Active Substance: LANREOTIDE ACETATE
     Dosage: 120 MG (E28D (EVERY 28 DAYS))
     Route: 058
  4. LANREOTIDE ACETATE [Suspect]
     Active Substance: LANREOTIDE ACETATE
     Dosage: 120 MG (E28D (EVERY 28 DAYS))
     Route: 058
  5. LANREOTIDE ACETATE [Suspect]
     Active Substance: LANREOTIDE ACETATE
     Dosage: 120 MG (E28D (EVERY 28 DAYS))
     Route: 058
  6. LANREOTIDE ACETATE [Suspect]
     Active Substance: LANREOTIDE ACETATE
     Dosage: 120 MG (E28D (EVERY 28 DAYS)) (ADMINISTERED THE MEDICATION INTO RIGHT BUTTOCK)
     Route: 058
  7. LANREOTIDE ACETATE [Suspect]
     Active Substance: LANREOTIDE ACETATE
     Dosage: 120 MG (E28D (EVERY 28 DAYS))
     Route: 058
  8. LANREOTIDE ACETATE [Suspect]
     Active Substance: LANREOTIDE ACETATE
     Dosage: 120 MG, E28D (DEEP SUBCUTANEOUS)
     Route: 058

REACTIONS (18)
  - Angina pectoris [Unknown]
  - Syncope [Unknown]
  - Chest pain [Unknown]
  - Tachycardia [Unknown]
  - Feeling hot [Unknown]
  - Blood pressure decreased [Recovered/Resolved]
  - Hepatic mass [Unknown]
  - Chronic obstructive pulmonary disease [Unknown]
  - Heart rate decreased [Recovered/Resolved]
  - Sputum discoloured [Unknown]
  - Heart rate increased [Unknown]
  - Dyspnoea [Not Recovered/Not Resolved]
  - Gait disturbance [Unknown]
  - Intention tremor [Unknown]
  - Abdominal pain [Unknown]
  - Dizziness [Unknown]
  - Fatigue [Not Recovered/Not Resolved]
  - Diarrhoea [Unknown]

NARRATIVE: CASE EVENT DATE: 20241115
